FAERS Safety Report 7105109-X (Version None)
Quarter: 2010Q4

REPORT INFORMATION
  Report Type: 
  Country: None (occurrence: None)
  Receive Date: 20101110
  Receipt Date: 20101101
  Transmission Date: 20110411
  Serious: Yes (Hospitalization, Congenital Anomaly)
  Sender: FDA-Public Use
  Company Number: 015614

PATIENT
  Sex: Male
  Weight: 3.2 kg

DRUGS (9)
  1. KEPPRA [Suspect]
     Indication: CONVULSION
     Dosage: 500 MG BID TRANSPLACENTAL, 750 MG BID TRANSPLACENTAL, 1000 MG BID TRANSPLACENTAL
     Route: 064
     Dates: start: 20100301, end: 20100601
  2. KEPPRA [Suspect]
     Indication: CONVULSION
     Dosage: 500 MG BID TRANSPLACENTAL, 750 MG BID TRANSPLACENTAL, 1000 MG BID TRANSPLACENTAL
     Route: 064
     Dates: start: 20100601, end: 20100701
  3. KEPPRA [Suspect]
     Indication: CONVULSION
     Dosage: 500 MG BID TRANSPLACENTAL, 750 MG BID TRANSPLACENTAL, 1000 MG BID TRANSPLACENTAL
     Route: 064
     Dates: start: 20100702, end: 20100712
  4. PERCOCET [Concomitant]
  5. LORTAB [Concomitant]
  6. ROBITUSSIN WITH CODEINE [Concomitant]
  7. ZITHROMAX [Concomitant]
  8. SUDAFED 12 HOUR [Concomitant]
  9. MOM [Concomitant]

REACTIONS (4)
  - ANKYLOGLOSSIA CONGENITAL [None]
  - BRAIN STEM AUDITORY EVOKED RESPONSE ABNORMAL [None]
  - CLEFT PALATE [None]
  - MATERNAL DRUGS AFFECTING FOETUS [None]
